FAERS Safety Report 12365603 (Version 1)
Quarter: 2016Q2

REPORT INFORMATION
  Report Type: Report from Study
  Country: CN (occurrence: CN)
  Receive Date: 20160513
  Receipt Date: 20160513
  Transmission Date: 20160815
  Serious: Yes (Death, Other)
  Sender: FDA-Public Use
  Company Number: CN-ROCHE-1755331

PATIENT

DRUGS (12)
  1. IDARUBICIN [Suspect]
     Active Substance: IDARUBICIN
     Indication: PROPHYLAXIS AGAINST TRANSPLANT REJECTION
     Dosage: FROM DAY -11 TO -9
     Route: 042
  2. CYCLOPHOSPHAMIDE. [Suspect]
     Active Substance: CYCLOPHOSPHAMIDE
     Dosage: 1.8 G/M2, FROM DAY -4 TO -3
     Route: 042
  3. HYDROXYCARBAMIDE [Suspect]
     Active Substance: HYDROXYUREA
     Indication: PROPHYLAXIS AGAINST TRANSPLANT REJECTION
     Dosage: ON DAY -9
     Route: 048
  4. CYCLOSPORINE A [Suspect]
     Active Substance: CYCLOSPORINE
     Indication: PROPHYLAXIS AGAINST GRAFT VERSUS HOST DISEASE
     Dosage: FROM DAY -1 UNTIL BOWEL FUNCTION RETURNED TO NORMAL, THEN THE PATIENTS WAS SWITCHED TO ORAL FORMULAT
     Route: 042
  5. MYCOPHENOLATE MOFETIL. [Suspect]
     Active Substance: MYCOPHENOLATE MOFETIL
     Indication: PROPHYLAXIS AGAINST GRAFT VERSUS HOST DISEASE
     Route: 048
  6. BUSULFAN. [Suspect]
     Active Substance: BUSULFAN
     Indication: PROPHYLAXIS AGAINST TRANSPLANT REJECTION
     Dosage: FROM DAY -6 TO -4
     Route: 042
  7. BASILIXIMAB [Suspect]
     Active Substance: BASILIXIMAB
     Indication: PROPHYLAXIS AGAINST GRAFT VERSUS HOST DISEASE
     Dosage: ON DAY 0 AND +4
     Route: 065
  8. BUSULFAN. [Suspect]
     Active Substance: BUSULFAN
     Dosage: IN DIVIDED, FROM DAY -7 TO -5
     Route: 042
  9. METHOTREXATE [Suspect]
     Active Substance: METHOTREXATE
     Indication: PROPHYLAXIS AGAINST GRAFT VERSUS HOST DISEASE
     Dosage: ON DAY +1 AND 10 MG/M2 ON DAYS +3, +6 AND +11.
     Route: 042
  10. METHYL-CCNU [Suspect]
     Active Substance: SEMUSTINE
     Indication: PROPHYLAXIS AGAINST TRANSPLANT REJECTION
     Dosage: ON DAY -2
     Route: 048
  11. CYCLOPHOSPHAMIDE. [Suspect]
     Active Substance: CYCLOPHOSPHAMIDE
     Indication: PROPHYLAXIS AGAINST TRANSPLANT REJECTION
     Dosage: 1.8 G/M2 FROM DAY -3 TO -2
     Route: 042
  12. ARA-C [Suspect]
     Active Substance: CYTARABINE
     Indication: PROPHYLAXIS AGAINST TRANSPLANT REJECTION
     Dosage: 2 G/M2 ON DAY -8
     Route: 042

REACTIONS (6)
  - Infection [Fatal]
  - Pneumonia bacterial [Unknown]
  - Cytomegalovirus infection [Unknown]
  - Venoocclusive liver disease [Unknown]
  - Pharyngeal inflammation [Unknown]
  - Cystitis haemorrhagic [Unknown]
